FAERS Safety Report 15200749 (Version 4)
Quarter: 2018Q4

REPORT INFORMATION
  Report Type: Spontaneous
  Country: US (occurrence: US)
  Receive Date: 20180726
  Receipt Date: 20181116
  Transmission Date: 20190204
  Serious: Yes (Other)
  Sender: FDA-Public Use
  Company Number: US-SA-2018SA202722

PATIENT
  Age: 46 Year
  Sex: Female

DRUGS (1)
  1. AUBAGIO [Suspect]
     Active Substance: TERIFLUNOMIDE
     Dosage: 14 MG, QD
     Route: 048
     Dates: start: 20170629

REACTIONS (7)
  - Nasopharyngitis [Unknown]
  - Gallbladder disorder [Unknown]
  - Nephrolithiasis [Unknown]
  - Dysstasia [Unknown]
  - Balance disorder [Unknown]
  - Fall [Unknown]
  - Tremor [Unknown]

NARRATIVE: CASE EVENT DATE: 20181107
